FAERS Safety Report 10637471 (Version 1)
Quarter: 2014Q4

REPORT INFORMATION
  Report Type: Spontaneous
  Country: None (occurrence: None)
  Receive Date: 20141205
  Receipt Date: 20141205
  Transmission Date: 20150529
  Serious: No
  Sender: FDA-Public Use
  Company Number: None

PATIENT
  Age: 18 Year
  Sex: Female
  Weight: 46.72 kg

DRUGS (1)
  1. TOPAMAX [Suspect]
     Active Substance: TOPIRAMATE
     Indication: MIGRAINE PROPHYLAXIS
     Dosage: 25MG 2 IN AM AND 2 IN PM, TWICE DAILY, TAKEN BY MOUTH
     Route: 048
     Dates: start: 20140910, end: 20141203

REACTIONS (4)
  - Insomnia [None]
  - Diarrhoea [None]
  - Acne [None]
  - Fungal infection [None]

NARRATIVE: CASE EVENT DATE: 20141203
